FAERS Safety Report 19835892 (Version 2)
Quarter: 2022Q4

REPORT INFORMATION
  Report Type: Spontaneous
  Country: DE (occurrence: DE)
  Receive Date: 20210915
  Receipt Date: 20221026
  Transmission Date: 20230112
  Serious: Yes (Hospitalization, Other)
  Sender: FDA-Public Use
  Company Number: None

PATIENT
  Age: 84 Year
  Sex: Male

DRUGS (14)
  1. ALDACTONE [Suspect]
     Active Substance: SPIRONOLACTONE
     Dosage: 25 MG, 1X/DAY ( 0-1-0-0)
     Route: 048
  2. XIPAMIDE [Suspect]
     Active Substance: XIPAMIDE
     Dosage: 10 MG, 1X/DAY (1-0-0-0)
     Route: 048
  3. RIVAROXABAN [Suspect]
     Active Substance: RIVAROXABAN
     Dosage: 20 MG, 1X/DAY (1-0-0-0)
     Route: 048
  4. TORSEMIDE [Suspect]
     Active Substance: TORSEMIDE
     Dosage: 10 MG, 1X/DAY (1-0-0-0)
     Route: 048
  5. BENSERAZIDE HYDROCHLORIDE\LEVODOPA [Concomitant]
     Active Substance: BENSERAZIDE HYDROCHLORIDE\LEVODOPA
     Dosage: UNK, 1X/DAY (1-0-0-0)
     Route: 048
  6. ALBUTEROL [Concomitant]
     Active Substance: ALBUTEROL
     Dosage: IF NECESSARY, METERED DOSE INHALER
     Route: 055
  7. STALEVO [Concomitant]
     Active Substance: CARBIDOPA\ENTACAPONE\LEVODOPA
     Dosage: 175 MG, 1X/DAY (0-1-0-0)
     Route: 048
  8. FLUTICASONE FUROATE\VILANTEROL TRIFENATATE [Concomitant]
     Active Substance: FLUTICASONE FUROATE\VILANTEROL TRIFENATATE
     Dosage: 100/25 ?G, (1-0-0-0) 1X/DAY
     Route: 055
  9. STALEVO [Concomitant]
     Active Substance: CARBIDOPA\ENTACAPONE\LEVODOPA
     Dosage: 150 MG, 1X/DAY (1-0-0-0)
     Route: 048
  10. STALEVO [Concomitant]
     Active Substance: CARBIDOPA\ENTACAPONE\LEVODOPA
     Dosage: 150 MG, 1X/DAY (0-0-1-0)
     Route: 048
  11. FLUTICASONE [Concomitant]
     Active Substance: FLUTICASONE
     Dosage: UNK, 2X/DAY (1-0-1-0)
  12. KALINOR-RETARD [Concomitant]
     Dosage: UNK, 2X/DAY (1-1-0-0)
     Route: 048
  13. MOMETASONE FUROATE [Concomitant]
     Active Substance: MOMETASONE FUROATE
     Dosage: 0.05 UG, 2X/DAY (1-0-1-0 )
  14. TIOTROPIUM BROMIDE [Concomitant]
     Active Substance: TIOTROPIUM BROMIDE
     Dosage: 2.5 UG, 1X/DAY (2-0-0-0)
     Route: 055

REACTIONS (5)
  - Chronic kidney disease [Unknown]
  - Hypotonia [Unknown]
  - Hypotension [Unknown]
  - Fatigue [Unknown]
  - General physical health deterioration [Unknown]
